FAERS Safety Report 21443987 (Version 1)
Quarter: 2022Q4

REPORT INFORMATION
  Report Type: Spontaneous
  Country: US (occurrence: US)
  Receive Date: 20221012
  Receipt Date: 20221012
  Transmission Date: 20230112
  Serious: Yes (Other)
  Sender: FDA-Public Use
  Company Number: US-BRISTOL-MYERS SQUIBB COMPANY-2022-116331

PATIENT
  Age: 64 Year
  Sex: Female

DRUGS (1)
  1. POMALYST [Suspect]
     Active Substance: POMALIDOMIDE
     Indication: Plasma cell myeloma
     Dosage: 4 MG, EVERY 3 DAYS
     Route: 048
     Dates: start: 20190425

REACTIONS (5)
  - Spinal fracture [Unknown]
  - Dehydration [Unknown]
  - Peripheral swelling [Unknown]
  - Off label use [Unknown]
  - Discharge [Unknown]

NARRATIVE: CASE EVENT DATE: 20220101
